FAERS Safety Report 10968635 (Version 2)
Quarter: 2015Q2

REPORT INFORMATION
  Report Type: Spontaneous
  Country: JP (occurrence: JP)
  Receive Date: 20150330
  Receipt Date: 20150522
  Transmission Date: 20150821
  Serious: Yes (Hospitalization)
  Sender: FDA-Public Use
  Company Number: JP-KERYX BIOPHARMA UK LTD-2014JP000617

PATIENT

DRUGS (7)
  1. SEIBULE [Concomitant]
     Active Substance: MIGLITOL
     Indication: DIABETES MELLITUS
     Dosage: 1 DF, UNK
     Route: 048
     Dates: start: 20140520
  2. TANKARU [Concomitant]
     Indication: HYPERPHOSPHATAEMIA
     Dosage: 1 DF, UNK
     Route: 048
     Dates: start: 20140520
  3. ONGLYZA [Concomitant]
     Active Substance: SAXAGLIPTIN HYDROCHLORIDE
     Indication: DIABETES MELLITUS
     Dosage: 1 DF, UNK
     Route: 048
     Dates: start: 20140520
  4. ZYLORIC [Concomitant]
     Active Substance: ALLOPURINOL
     Indication: HYPERURICAEMIA
     Dosage: 1 DF, UNK
     Route: 048
     Dates: start: 20140520
  5. RIONA [Suspect]
     Active Substance: FERRIC CITRATE ANHYDROUS
     Indication: HYPERPHOSPHATAEMIA
     Dosage: 500 MG, TID
     Route: 048
     Dates: start: 20140705, end: 20140809
  6. ADALAT [Concomitant]
     Active Substance: NIFEDIPINE
     Indication: HYPERTENSION
     Dosage: 1 DF, UNK
     Route: 048
     Dates: start: 20140520
  7. PLETAAL [Concomitant]
     Active Substance: CILOSTAZOL
     Dosage: 1 DF, UNK
     Route: 048
     Dates: start: 20140520

REACTIONS (2)
  - Post procedural complication [None]
  - Acute abdomen [Recovered/Resolved]

NARRATIVE: CASE EVENT DATE: 20140729
